FAERS Safety Report 24007717 (Version 1)
Quarter: 2024Q2

REPORT INFORMATION
  Report Type: Spontaneous
  Country: US (occurrence: US)
  Receive Date: 20240625
  Receipt Date: 20240625
  Transmission Date: 20240717
  Serious: No
  Sender: FDA-Public Use
  Company Number: US-TEVA-VS-3209883

PATIENT
  Sex: Female

DRUGS (8)
  1. PENICILLIN [Suspect]
     Active Substance: PENICILLIN
     Indication: Product used for unknown indication
     Route: 065
  2. ACTEMRA [Concomitant]
     Active Substance: TOCILIZUMAB
  3. CELEBREX [Concomitant]
     Active Substance: CELECOXIB
  4. PREDNISONE [Concomitant]
     Active Substance: PREDNISONE
  5. HYDROCODONE [Concomitant]
     Active Substance: HYDROCODONE
  6. METOPROLOL [Concomitant]
     Active Substance: METOPROLOL
  7. PLAQUENIL [Concomitant]
     Active Substance: HYDROXYCHLOROQUINE SULFATE
  8. TYLENOL EXTRA STRENGTH [Concomitant]
     Active Substance: ACETAMINOPHEN

REACTIONS (1)
  - Rash [Unknown]
